FAERS Safety Report 4500617-X (Version None)
Quarter: 2004Q4

REPORT INFORMATION
  Report Type: 
  Country: None (occurrence: None)
  Receive Date: 20041115
  Receipt Date: 20030106
  Transmission Date: 20050328
  Serious: Yes (Hospitalization)
  Sender: FDA-Public Use
  Company Number: US-BRISTOL-MYERS SQUIBB COMPANY-12152302

PATIENT
  Age: 64 Year
  Sex: Female

DRUGS (6)
  1. GLUCOPHAGE [Suspect]
     Indication: DIABETES MELLITUS
     Route: 048
     Dates: end: 20021118
  2. CAPTEA [Suspect]
     Indication: ESSENTIAL HYPERTENSION
     Route: 048
     Dates: end: 20021120
  3. CYCLO 3 [Suspect]
     Indication: PERIPHERAL VASCULAR DISORDER
     Route: 048
     Dates: end: 20021116
  4. VASTAREL [Suspect]
     Indication: ANGINA PECTORIS
     Route: 048
     Dates: end: 20021116
  5. LIPANTHYL [Suspect]
     Indication: HYPERCHOLESTEROLAEMIA
     Route: 048
     Dates: end: 20021116
  6. CAPTOPRIL [Concomitant]
     Route: 048
     Dates: end: 20021120

REACTIONS (1)
  - PANCREATITIS ACUTE [None]
